FAERS Safety Report 19921254 (Version 1)
Quarter: 2021Q4

REPORT INFORMATION
  Report Type: Report from Study
  Country: US (occurrence: US)
  Receive Date: 20211005
  Receipt Date: 20211005
  Transmission Date: 20220303
  Serious: Yes (Hospitalization, Other)
  Sender: FDA-Public Use
  Company Number: US-TAKEDA-US201726930

PATIENT
  Age: 62 Year
  Sex: Female
  Weight: 61.5 kg

DRUGS (15)
  1. TEDUGLUTIDE [Suspect]
     Active Substance: TEDUGLUTIDE
     Indication: Short-bowel syndrome
     Dosage: 0.05 MG/KG, TOTAL DOSE 3.5
     Route: 065
     Dates: start: 20130510
  2. TEDUGLUTIDE [Suspect]
     Active Substance: TEDUGLUTIDE
     Indication: Short-bowel syndrome
     Dosage: 0.05 MG/KG, TOTAL DOSE 3.5
     Route: 065
     Dates: start: 20130510
  3. TEDUGLUTIDE [Suspect]
     Active Substance: TEDUGLUTIDE
     Indication: Short-bowel syndrome
     Dosage: 0.05 MG/KG, TOTAL DOSE 3.5
     Route: 065
     Dates: start: 20130510
  4. TEDUGLUTIDE [Suspect]
     Active Substance: TEDUGLUTIDE
     Indication: Short-bowel syndrome
     Dosage: 0.05 MG/KG, TOTAL DOSE 3.5
     Route: 065
     Dates: start: 20130510
  5. TEDUGLUTIDE [Suspect]
     Active Substance: TEDUGLUTIDE
     Dosage: 3.1 MILLIGRAM (0.05 MILLIGRAM/KILOGRAM), QD
     Route: 065
     Dates: start: 20130510, end: 201809
  6. TEDUGLUTIDE [Suspect]
     Active Substance: TEDUGLUTIDE
     Dosage: 3.1 MILLIGRAM (0.05 MILLIGRAM/KILOGRAM), QD
     Route: 065
     Dates: start: 20130510, end: 201809
  7. TEDUGLUTIDE [Suspect]
     Active Substance: TEDUGLUTIDE
     Dosage: 3.1 MILLIGRAM (0.05 MILLIGRAM/KILOGRAM), QD
     Route: 065
     Dates: start: 20130510, end: 201809
  8. TEDUGLUTIDE [Suspect]
     Active Substance: TEDUGLUTIDE
     Dosage: 3.1 MILLIGRAM (0.05 MILLIGRAM/KILOGRAM), QD
     Route: 065
     Dates: start: 20130510, end: 201809
  9. CLONAZEPAM [Concomitant]
     Active Substance: CLONAZEPAM
     Indication: Anxiety
     Dosage: 1 MILLIGRAM, QD
     Route: 048
     Dates: start: 20210305
  10. CIPROFLOXACIN [Concomitant]
     Active Substance: CIPROFLOXACIN
     Indication: Sepsis
  11. SYMBICORT [Concomitant]
     Active Substance: BUDESONIDE\FORMOTEROL FUMARATE DIHYDRATE
     Indication: Chronic obstructive pulmonary disease
  12. ATENOLOL [Concomitant]
     Active Substance: ATENOLOL
     Indication: Hypertension
  13. RISPERDAL [Concomitant]
     Active Substance: RISPERIDONE
     Indication: Sleep disorder
     Dosage: 1 MILLIGRAM, QD
     Route: 048
     Dates: start: 20200928
  14. MAGNESIUM SULFATE [Concomitant]
     Active Substance: MAGNESIUM SULFATE
     Indication: Prophylaxis
     Dosage: 4 MILLIEQUIVALENT/MILLILITER, QD
     Route: 042
     Dates: start: 20210209
  15. GENTAMICIN [Concomitant]
     Active Substance: GENTAMICIN
     Indication: Prophylaxis
     Dosage: 40 MILLIGRAM, QD
     Route: 042
     Dates: start: 20201002

REACTIONS (1)
  - Thoracic vertebral fracture [Recovered/Resolved with Sequelae]

NARRATIVE: CASE EVENT DATE: 20171016
